FAERS Safety Report 12792582 (Version 1)
Quarter: 2016Q3

REPORT INFORMATION
  Report Type: Spontaneous
  Country: US (occurrence: US)
  Receive Date: 20160928
  Receipt Date: 20160928
  Transmission Date: 20161109
  Serious: Yes (Disabling)
  Sender: FDA-Public Use
  Company Number: None

PATIENT
  Age: 55 Year
  Sex: Female
  Weight: 77.11 kg

DRUGS (1)
  1. REFRESH P.M. [Suspect]
     Active Substance: MINERAL OIL\PETROLATUM
     Indication: DRY EYE
     Route: 031
     Dates: start: 20151001, end: 20151031

REACTIONS (13)
  - Eye inflammation [None]
  - Activities of daily living impaired [None]
  - Eye discharge [None]
  - Photophobia [None]
  - Product closure issue [None]
  - Eye pain [None]
  - Impaired work ability [None]
  - Occupational problem environmental [None]
  - Dry eye [None]
  - Product contamination physical [None]
  - Product use issue [None]
  - Corneal disorder [None]
  - Eye disorder [None]

NARRATIVE: CASE EVENT DATE: 20151001
